FAERS Safety Report 9168759 (Version 2)
Quarter: 2013Q2

REPORT INFORMATION
  Report Type: Spontaneous
  Country: DE (occurrence: DE)
  Receive Date: 20130318
  Receipt Date: 20130412
  Transmission Date: 20140414
  Serious: Yes (Other)
  Sender: FDA-Public Use
  Company Number: DE-B.I. PHARMACEUTICALS,INC./RIDGEFIELD-2013-DE-00684DE

PATIENT
  Age: 78 Year
  Sex: Female
  Weight: 55 kg

DRUGS (12)
  1. PRADAXA [Suspect]
     Indication: ATRIAL FIBRILLATION
     Dosage: 220 MG
     Dates: start: 20120301, end: 20130311
  2. PRADAXA [Suspect]
     Indication: CEREBROVASCULAR ACCIDENT
     Dosage: 220 MG
     Route: 048
     Dates: start: 201204
  3. PRADAXA [Suspect]
     Indication: ARRHYTHMIA
  4. METOPROLOL SUCC [Concomitant]
     Indication: ATRIAL FIBRILLATION
     Dosage: 47.5 NR
     Dates: start: 2007
  5. SIMVASTATIN AL [Concomitant]
     Dosage: 5 MG
  6. ATACAND PLUS [Concomitant]
     Indication: HYPERTENSION
     Dosage: 0.5 ANZ
     Dates: start: 2007
  7. OMEP [Concomitant]
     Dosage: 10 MG
  8. RESTEX [Concomitant]
     Dosage: 1 ANZ
  9. NEURODORON [Concomitant]
     Dosage: 6 ANZ
  10. DIGIMERCK MINOR [Concomitant]
     Dosage: 0.07 NR
  11. METFORMIN [Concomitant]
     Indication: DIABETES MELLITUS
     Dosage: 1000 MG
     Dates: start: 201211
  12. L-THYROXIN [Concomitant]
     Dosage: 25 MCG

REACTIONS (4)
  - Type 2 diabetes mellitus [Not Recovered/Not Resolved]
  - Diabetic neuropathy [Not Recovered/Not Resolved]
  - Blood glucose increased [Not Recovered/Not Resolved]
  - Weight decreased [Not Recovered/Not Resolved]
